FAERS Safety Report 6531551-1 (Version None)
Quarter: 2010Q1

REPORT INFORMATION
  Report Type: 
  Country: None (occurrence: None)
  Receive Date: 20100108
  Receipt Date: 20100104
  Transmission Date: 20100710
  Serious: Yes (Other)
  Sender: FDA-Public Use
  Company Number: GB-SANOFI-AVENTIS-200718052GDDC

PATIENT
  Age: 59 Year
  Sex: Female
  Weight: 103 kg

DRUGS (9)
  1. INSULIN GLARGINE [Suspect]
     Dosage: DOSE AS USED: 16-20 IU
     Route: 058
     Dates: start: 20070710, end: 20070728
  2. CAPTOPRIL [Concomitant]
     Route: 048
     Dates: start: 19930801
  3. ALL OTHER THERAPEUTIC PRODUCTS [Concomitant]
     Route: 048
     Dates: start: 20000701
  4. LORATADINE [Concomitant]
     Route: 048
     Dates: start: 20000601
  5. LORATADINE [Concomitant]
     Indication: WHEEZING
     Route: 048
     Dates: start: 20000601
  6. SIMVASTATIN [Concomitant]
     Route: 048
     Dates: start: 20060301
  7. FUROSEMIDE [Concomitant]
     Route: 048
     Dates: start: 20070101
  8. CANDESARTAN CILEXETIL [Concomitant]
     Route: 048
     Dates: start: 20050418
  9. PARACETAMOL [Concomitant]

REACTIONS (3)
  - CONDITION AGGRAVATED [None]
  - HYPERHIDROSIS [None]
  - IRRITABLE BOWEL SYNDROME [None]
